FAERS Safety Report 16087584 (Version 1)
Quarter: 2019Q1

REPORT INFORMATION
  Report Type: Spontaneous
  Country: CA (occurrence: CA)
  Receive Date: 20190319
  Receipt Date: 20190319
  Transmission Date: 20190418
  Serious: Yes (Other)
  Sender: FDA-Public Use
  Company Number: CA-JNJFOC-20190317893

PATIENT
  Age: 56 Year
  Sex: Female

DRUGS (5)
  1. TYLENOL [Suspect]
     Active Substance: ACETAMINOPHEN
     Indication: PRODUCT USED FOR UNKNOWN INDICATION
     Route: 065
  2. ZOLOFT [Concomitant]
     Active Substance: SERTRALINE HYDROCHLORIDE
     Indication: PRODUCT USED FOR UNKNOWN INDICATION
     Route: 065
  3. TYLENOL [Suspect]
     Active Substance: ACETAMINOPHEN
     Route: 065
  4. XOLAIR [Suspect]
     Active Substance: OMALIZUMAB
     Indication: ASTHMA
     Route: 058
  5. NEXIUM [Concomitant]
     Active Substance: ESOMEPRAZOLE MAGNESIUM
     Indication: PRODUCT USED FOR UNKNOWN INDICATION
     Route: 065

REACTIONS (18)
  - Productive cough [Unknown]
  - Sputum discoloured [Unknown]
  - Rash pruritic [Unknown]
  - Wheezing [Unknown]
  - Swelling [Unknown]
  - Asthma [Unknown]
  - Fibromyalgia [Unknown]
  - Weight decreased [Unknown]
  - Seasonal allergy [Unknown]
  - Hypertension [Unknown]
  - Pyrexia [Unknown]
  - Blood pressure increased [Unknown]
  - Heart rate increased [Unknown]
  - Upper-airway cough syndrome [Unknown]
  - Cough [Unknown]
  - Glossodynia [Unknown]
  - Pruritus [Unknown]
  - Erythema [Unknown]
